FAERS Safety Report 19951751 (Version 2)
Quarter: 2021Q4

REPORT INFORMATION
  Report Type: Spontaneous
  Country: US (occurrence: US)
  Receive Date: 20211013
  Receipt Date: 20211103
  Transmission Date: 20220304
  Serious: Yes (Other)
  Sender: FDA-Public Use
  Company Number: US-TEVA-2021-US-1963795

PATIENT
  Age: 27 Year
  Sex: Female

DRUGS (3)
  1. ISONIAZID [Suspect]
     Active Substance: ISONIAZID
     Indication: Latent tuberculosis
     Route: 065
  2. RIFAPENTINE [Concomitant]
     Active Substance: RIFAPENTINE
     Indication: Latent tuberculosis
     Route: 065
  3. VITAMIN B6 [Concomitant]
     Active Substance: PYRIDOXINE HYDROCHLORIDE
     Indication: Latent tuberculosis
     Dosage: 100MG
     Route: 065

REACTIONS (4)
  - Polyneuropathy [Recovering/Resolving]
  - Neuropathy peripheral [Recovering/Resolving]
  - Sleep disorder [Unknown]
  - Impaired quality of life [Unknown]
